FAERS Safety Report 13193169 (Version 1)
Quarter: 2017Q1

REPORT INFORMATION
  Report Type: Spontaneous
  Country: NO (occurrence: NO)
  Receive Date: 20170207
  Receipt Date: 20170207
  Transmission Date: 20170428
  Serious: Yes (Hospitalization)
  Sender: FDA-Public Use
  Company Number: NO-009507513-1702NOR002224

PATIENT
  Age: 44 Year
  Sex: Female

DRUGS (4)
  1. REMIFENTANIL HYDROCHLORIDE [Suspect]
     Active Substance: REMIFENTANIL HYDROCHLORIDE
     Indication: ANAESTHESIA
     Route: 041
     Dates: start: 20170119, end: 20170119
  2. OXYNORM [Suspect]
     Active Substance: OXYCODONE HYDROCHLORIDE
     Dosage: DOSE GIVEN: PROBABLY 5 MG
     Dates: start: 20170119, end: 20170119
  3. ESMERON [Suspect]
     Active Substance: ROCURONIUM BROMIDE
     Indication: ANAESTHESIA
     Dosage: DOSE GIVEN: 30 OR 50 MG
     Route: 042
     Dates: start: 20170119, end: 20170119
  4. PROPOFOL. [Suspect]
     Active Substance: PROPOFOL
     Indication: ANAESTHESIA
     Dosage: UNK
     Route: 041
     Dates: start: 20170119, end: 20170119

REACTIONS (4)
  - Sinus tachycardia [Recovered/Resolved]
  - Anaphylactoid reaction [Recovered/Resolved]
  - Generalised erythema [Recovered/Resolved]
  - Circulatory collapse [Recovered/Resolved]

NARRATIVE: CASE EVENT DATE: 20170119
